FAERS Safety Report 9050548 (Version 1)
Quarter: 2013Q1

REPORT INFORMATION
  Report Type: Spontaneous
  Country: US (occurrence: US)
  Receive Date: 20130205
  Receipt Date: 20130205
  Transmission Date: 20140127
  Serious: Yes (Hospitalization, Other)
  Sender: FDA-Public Use
  Company Number: US-ELI_LILLY_AND_COMPANY-US201107000296

PATIENT
  Sex: Female

DRUGS (5)
  1. BYETTA [Suspect]
     Dosage: UNK UNK, UNKNOWN
     Route: 058
     Dates: start: 2005, end: 2009
  2. METFORMIN [Concomitant]
     Indication: DIABETES MELLITUS
     Dosage: 850 MG, BID
  3. LANTUS [Concomitant]
     Dosage: UNK, UNKNOWN
  4. CALCIUM [Concomitant]
  5. VITAMINS [Concomitant]

REACTIONS (8)
  - Abasia [Unknown]
  - Asthenia [Unknown]
  - Pancreatitis [Unknown]
  - Renal disorder [Unknown]
  - Local swelling [Unknown]
  - Local swelling [Unknown]
  - Diarrhoea [Unknown]
  - Headache [Unknown]
